FAERS Safety Report 15147273 (Version 1)
Quarter: 2018Q3

REPORT INFORMATION
  Report Type: Spontaneous
  Country: GB (occurrence: GB)
  Receive Date: 20180716
  Receipt Date: 20180716
  Transmission Date: 20181010
  Serious: Yes (Other)
  Sender: FDA-Public Use
  Company Number: GB-TEVA-2018-GB-927319

PATIENT
  Age: 48 Year
  Sex: Female
  Weight: 60 kg

DRUGS (2)
  1. CO?AMOXICLAV [Suspect]
     Active Substance: AMOXICILLIN\CLAVULANATE POTASSIUM
     Dosage: 3 X LIQUID DRIP ? HOSPITAL
     Route: 041
     Dates: end: 20180604
  2. CO? AMOXICLAV [Suspect]
     Active Substance: AMOXICILLIN\CLAVULANATE POTASSIUM
     Indication: DIVERTICULITIS
     Dosage: 3 DOSAGE FORMS DAILY;
     Route: 048
     Dates: end: 20180604

REACTIONS (6)
  - Dysgeusia [Unknown]
  - Vomiting [Unknown]
  - Headache [Recovered/Resolved]
  - Thirst [Recovered/Resolved]
  - Ear pain [Recovered/Resolved]
  - Nausea [Recovered/Resolved]

NARRATIVE: CASE EVENT DATE: 20180527
